FAERS Safety Report 8315208-2 (Version None)
Quarter: 2012Q2

REPORT INFORMATION
  Report Type: 
  Country: None (occurrence: None)
  Receive Date: 20120426
  Receipt Date: 20120420
  Transmission Date: 20120825
  Serious: Yes (Other)
  Sender: FDA-Public Use
  Company Number: US-BRISTOL-MYERS SQUIBB COMPANY-16540106

PATIENT
  Age: 49 Year
  Sex: Female

DRUGS (1)
  1. ORENCIA [Suspect]
     Dosage: INTERRUPTED IN NOV2011
     Route: 042

REACTIONS (3)
  - SURGERY [None]
  - BRONCHITIS [None]
  - NASOPHARYNGITIS [None]
